FAERS Safety Report 16820161 (Version 4)
Quarter: 2025Q3

REPORT INFORMATION
  Report Type: Spontaneous
  Country: EU (occurrence: EU)
  Receive Date: 20190918
  Receipt Date: 20250826
  Transmission Date: 20251021
  Serious: Yes (Hospitalization, Other)
  Sender: AUROBINDO
  Company Number: None

PATIENT
  Age: 25 Year
  Sex: Female

DRUGS (11)
  1. ACETAMINOPHEN [Suspect]
     Active Substance: ACETAMINOPHEN
     Indication: Product used for unknown indication
     Route: 065
  2. OMEPRAZOLE [Suspect]
     Active Substance: OMEPRAZOLE
     Indication: Product used for unknown indication
     Route: 042
  3. PAPAVERINE [Suspect]
     Active Substance: PAPAVERINE
     Indication: Product used for unknown indication
     Route: 042
  4. NIMESULIDE [Suspect]
     Active Substance: NIMESULIDE
     Indication: Back pain
     Route: 065
  5. DROTAVERINE [Suspect]
     Active Substance: DROTAVERINE
     Indication: Product used for unknown indication
     Route: 042
  6. KETOPROFEN [Suspect]
     Active Substance: KETOPROFEN
     Indication: Back pain
     Route: 042
  7. KETOPROFEN [Suspect]
     Active Substance: KETOPROFEN
     Route: 048
  8. LACTULOSE [Suspect]
     Active Substance: LACTULOSE
     Indication: Product used for unknown indication
     Route: 065
  9. METAMIZOLE [Suspect]
     Active Substance: METAMIZOLE
     Indication: Back pain
     Dosage: 3 GRAM, ONCE A DAY
     Route: 042
  10. MEPERIDINE [Suspect]
     Active Substance: MEPERIDINE
     Indication: Product used for unknown indication
     Route: 042
  11. METOCLOPRAMIDE [Suspect]
     Active Substance: METOCLOPRAMIDE
     Indication: Product used for unknown indication
     Route: 042

REACTIONS (9)
  - Pancreatitis acute [Recovered/Resolved]
  - Amylase increased [Recovered/Resolved]
  - Lipase increased [Recovered/Resolved]
  - Pancreatic enzymes increased [Not Recovered/Not Resolved]
  - Helicobacter infection [Unknown]
  - Helicobacter gastritis [Recovered/Resolved]
  - Gastritis [Unknown]
  - Abdominal pain upper [Recovered/Resolved]
  - Abdominal pain [Unknown]
